FAERS Safety Report 11656809 (Version 1)
Quarter: 2015Q4

REPORT INFORMATION
  Report Type: Spontaneous
  Country: US (occurrence: US)
  Receive Date: 20151023
  Receipt Date: 20151023
  Transmission Date: 20160304
  Serious: Yes (Other)
  Sender: FDA-Public Use
  Company Number: US-ACTAVIS-2015-22941

PATIENT
  Age: 25 Year
  Sex: Male

DRUGS (1)
  1. DISULFIRAM (WATSON LABORATORIES) [Suspect]
     Active Substance: DISULFIRAM
     Indication: ALCOHOL ABUSE
     Dosage: 500 MG, TID
     Route: 065

REACTIONS (1)
  - Axonal neuropathy [Recovering/Resolving]
